FAERS Safety Report 14855240 (Version 1)
Quarter: 2018Q2

REPORT INFORMATION
  Report Type: Spontaneous
  Country: US (occurrence: US)
  Receive Date: 20180507
  Receipt Date: 20180507
  Transmission Date: 20180711
  Serious: No
  Sender: FDA-Public Use
  Company Number: US-ROCHE-1951357

PATIENT
  Sex: Female

DRUGS (2)
  1. ESBRIET [Suspect]
     Active Substance: PIRFENIDONE
     Indication: INTERSTITIAL LUNG DISEASE
     Dosage: 801 MG
     Route: 048
     Dates: start: 20170115
  2. ESBRIET [Suspect]
     Active Substance: PIRFENIDONE
     Dosage: 6 CAPSULES PER DAY
     Route: 048

REACTIONS (1)
  - Nausea [Not Recovered/Not Resolved]
